FAERS Safety Report 24063142 (Version 3)
Quarter: 2024Q3

REPORT INFORMATION
  Report Type: Report from Study
  Country: CA (occurrence: CA)
  Receive Date: 20240709
  Receipt Date: 20240913
  Transmission Date: 20241016
  Serious: Yes (Hospitalization, Other)
  Sender: SANDOZ
  Company Number: CA-002147023-NVSC2022CA172291

PATIENT
  Sex: Male

DRUGS (2)
  1. HYRIMOZ [Suspect]
     Active Substance: ADALIMUMAB-ADAZ
     Indication: Crohn^s disease
     Dosage: 40 MG, EVERY TWO WEEKS
     Route: 058
     Dates: start: 20220321
  2. HYRIMOZ [Suspect]
     Active Substance: ADALIMUMAB-ADAZ
     Dosage: UNK
     Route: 058
     Dates: start: 20220721

REACTIONS (9)
  - Faecaluria [Unknown]
  - Hospitalisation [Unknown]
  - Haematochezia [Unknown]
  - Fistula [Unknown]
  - Urinary tract infection [Unknown]
  - Rash [Unknown]
  - Swelling face [Unknown]
  - Drug ineffective [Unknown]
  - Off label use [Unknown]
